FAERS Safety Report 8419683-4 (Version None)
Quarter: 2012Q2

REPORT INFORMATION
  Report Type: 
  Country: None (occurrence: None)
  Receive Date: 20120607
  Receipt Date: 20120530
  Transmission Date: 20120825
  Serious: Yes (Hospitalization)
  Sender: FDA-Public Use
  Company Number: DE-TEVA-340103USA

PATIENT
  Sex: Male

DRUGS (2)
  1. TREANDA [Suspect]
     Route: 042
     Dates: start: 20110404
  2. RITUXIMAB [Suspect]
     Indication: CHRONIC LYMPHOCYTIC LEUKAEMIA
     Dosage: UNKNOWN/D
     Route: 042
     Dates: start: 20110404

REACTIONS (1)
  - HEPATITIS TOXIC [None]
